FAERS Safety Report 17349220 (Version 2)
Quarter: 2020Q1

REPORT INFORMATION
  Report Type: Spontaneous
  Country: CA (occurrence: CA)
  Receive Date: 20200130
  Receipt Date: 20200305
  Transmission Date: 20200409
  Serious: Yes (Hospitalization, Other)
  Sender: FDA-Public Use
  Company Number: CA-ABBVIE-20K-028-3254101-00

PATIENT
  Age: 20 Year
  Sex: Female
  Weight: 68.55 kg

DRUGS (4)
  1. ORILISSA [Suspect]
     Active Substance: ELAGOLIX SODIUM
     Route: 048
     Dates: start: 20200126, end: 20200130
  2. ORILISSA [Suspect]
     Active Substance: ELAGOLIX SODIUM
     Indication: PELVIC PAIN
     Route: 048
     Dates: start: 20191215, end: 20200125
  3. NORLUTATE [Concomitant]
     Active Substance: NORETHINDRONE ACETATE
     Indication: PRODUCT USED FOR UNKNOWN INDICATION
     Route: 048
     Dates: start: 20200126
  4. MIRENA [Concomitant]
     Active Substance: LEVONORGESTREL
     Indication: PELVIC PAIN
     Dates: start: 2017

REACTIONS (7)
  - Dizziness [Unknown]
  - Seizure [Recovered/Resolved]
  - Fall [Unknown]
  - Loss of consciousness [Unknown]
  - Visual impairment [Unknown]
  - Tremor [Unknown]
  - Pain [Unknown]

NARRATIVE: CASE EVENT DATE: 20200126
